FAERS Safety Report 7009248-3 (Version None)
Quarter: 2010Q3

REPORT INFORMATION
  Report Type: 
  Country: None (occurrence: None)
  Receive Date: 20100923
  Receipt Date: 20100910
  Transmission Date: 20110219
  Serious: Yes (Hospitalization)
  Sender: FDA-Public Use
  Company Number: US-SANOFI-AVENTIS-2010SA056529

PATIENT
  Age: 64 Year
  Sex: Male
  Weight: 118.18 kg

DRUGS (5)
  1. ARAVA [Suspect]
     Indication: RHEUMATOID ARTHRITIS
     Route: 048
     Dates: start: 20070101, end: 20080201
  2. HUMIRA [Suspect]
     Indication: RHEUMATOID ARTHRITIS
     Route: 058
     Dates: start: 20050101, end: 20070301
  3. HUMIRA [Suspect]
     Route: 058
     Dates: start: 20070301
  4. ESOMEPRAZOLE MAGNESIUM [Concomitant]
     Indication: ULCER
     Route: 048
     Dates: start: 20050101
  5. CAPTOPRIL [Concomitant]
     Indication: BLOOD PRESSURE

REACTIONS (5)
  - DIARRHOEA [None]
  - HEPATIC ENZYME INCREASED [None]
  - NAUSEA [None]
  - VOMITING [None]
  - WEIGHT DECREASED [None]
